FAERS Safety Report 9251326 (Version 1)
Quarter: 2013Q1

REPORT INFORMATION
  Report Type: Spontaneous
  Country: US (occurrence: None)
  Receive Date: 20130305
  Receipt Date: 20130305
  Transmission Date: 20140127
  Serious: Yes (Hospitalization, Other)
  Sender: FDA-Public Use
  Company Number: 163-21880-12100508

PATIENT
  Age: 76 Year
  Sex: Female
  Weight: 68.04 kg

DRUGS (9)
  1. REVLIMID [Suspect]
     Indication: PLASMA CELL MYELOMA
     Dosage: 21 IN 28 D
     Route: 048
     Dates: start: 20120806
  2. CENTRUM [Concomitant]
  3. CITRACAL (CALCIUM CITRATE) [Concomitant]
  4. VITAMIN D [Concomitant]
  5. WARFARIN [Concomitant]
  6. FISH OIL [Concomitant]
  7. FERROUS SULFATE (FERROUS SULFATE) [Concomitant]
  8. VITAMIN C [Concomitant]
  9. FLECAINIDE [Concomitant]

REACTIONS (2)
  - Red blood cell count decreased [None]
  - Haemoglobin decreased [None]
